FAERS Safety Report 5741899-6 (Version None)
Quarter: 2008Q2

REPORT INFORMATION
  Report Type: 
  Country: None (occurrence: None)
  Receive Date: 20080514
  Receipt Date: 20080514
  Transmission Date: 20081010
  Serious: Yes (Other)
  Sender: FDA-Public Use
  Company Number: None

PATIENT
  Age: 7 Year
  Sex: Female
  Weight: 19.5047 kg

DRUGS (3)
  1. SINGULAIR [Suspect]
     Indication: ASTHMA
     Dosage: ONE TAB 4 MG DAILY PO
     Route: 048
     Dates: start: 20050816, end: 20080215
  2. SINGULAIR [Suspect]
     Indication: RHINITIS ALLERGIC
     Dosage: ONE TAB 4 MG DAILY PO
     Route: 048
     Dates: start: 20050816, end: 20080215
  3. ALLEGRA [Concomitant]

REACTIONS (2)
  - ABNORMAL BEHAVIOUR [None]
  - AGGRESSION [None]
